FAERS Safety Report 8521562-9 (Version None)
Quarter: 2012Q3

REPORT INFORMATION
  Report Type: 
  Country: None (occurrence: None)
  Receive Date: 20120719
  Receipt Date: 20120716
  Transmission Date: 20120928
  Serious: Yes (Hospitalization)
  Sender: FDA-Public Use
  Company Number: PHEH2012US014046

PATIENT
  Sex: Female
  Weight: 65.76 kg

DRUGS (6)
  1. NUVIGIL [Concomitant]
     Dosage: 150 MG, UNK
  2. ZOMIG [Concomitant]
     Dosage: 5 MG, UNK
  3. PROZAC [Concomitant]
     Dosage: 10 MG, UNK
  4. VITAMIN B-12 [Concomitant]
     Dosage: 2000 UG, UNK
  5. GILENYA [Suspect]
     Dosage: 0.5 MG, QD
     Route: 048
  6. FAMPRIDINE [Concomitant]
     Dosage: 10 MG, UNK

REACTIONS (2)
  - NASOPHARYNGITIS [None]
  - CONVULSION [None]
